FAERS Safety Report 23072896 (Version 1)
Quarter: 2023Q4

REPORT INFORMATION
  Report Type: Report from Study
  Country: US (occurrence: US)
  Receive Date: 20231017
  Receipt Date: 20231017
  Transmission Date: 20240110
  Serious: Yes (Other)
  Sender: FDA-Public Use
  Company Number: US-ABBVIE-5451495

PATIENT
  Sex: Male

DRUGS (1)
  1. HUMIRA [Suspect]
     Active Substance: ADALIMUMAB
     Indication: Colitis ulcerative
     Route: 058
     Dates: start: 20230203

REACTIONS (6)
  - Trigger finger [Not Recovered/Not Resolved]
  - Post procedural complication [Unknown]
  - Scar [Unknown]
  - Precancerous lesion of digestive tract [Unknown]
  - Colitis [Recovering/Resolving]
  - Colonic abscess [Unknown]

NARRATIVE: CASE EVENT DATE: 20230101
